FAERS Safety Report 4536195-9 (Version None)
Quarter: 2004Q4

REPORT INFORMATION
  Report Type: 
  Country: None (occurrence: None)
  Receive Date: 20041223
  Receipt Date: 20041012
  Transmission Date: 20050328
  Serious: Yes (Other)
  Sender: FDA-Public Use
  Company Number: IT-GLAXOSMITHKLINE-B0348751A

PATIENT
  Age: 70 Year
  Sex: Male

DRUGS (2)
  1. DUTASTERIDE [Suspect]
     Dosage: .5MG PER DAY
     Route: 048
     Dates: start: 20040823, end: 20040827
  2. SERENOA REPENS [Concomitant]
     Indication: BENIGN PROSTATIC HYPERPLASIA
     Dosage: 320MG PER DAY
     Route: 048

REACTIONS (5)
  - ABDOMINAL PAIN UPPER [None]
  - ALANINE AMINOTRANSFERASE INCREASED [None]
  - ASPARTATE AMINOTRANSFERASE INCREASED [None]
  - FLANK PAIN [None]
  - HYPERHIDROSIS [None]
